FAERS Safety Report 18909210 (Version 1)
Quarter: 2021Q1

REPORT INFORMATION
  Report Type: Spontaneous
  Country: US (occurrence: US)
  Receive Date: 20210217
  Receipt Date: 20210217
  Transmission Date: 20210420
  Serious: Yes (Life-Threatening, Hospitalization)
  Sender: FDA-Public Use
  Company Number: None

PATIENT
  Age: 73 Year
  Sex: Male

DRUGS (1)
  1. IOHEXOL (IOHEXOL 755 MG/ML INJ) [Suspect]
     Active Substance: IOHEXOL
     Indication: SCAN WITH CONTRAST
     Dates: start: 20210122, end: 20210122

REACTIONS (10)
  - Stupor [None]
  - Cyanosis [None]
  - Contrast media allergy [None]
  - Pulse abnormal [None]
  - Hypopnoea [None]
  - Anal sphincter atony [None]
  - Respiratory depression [None]
  - Wheezing [None]
  - Bronchospasm [None]
  - Syncope [None]

NARRATIVE: CASE EVENT DATE: 20210122
